FAERS Safety Report 11940670 (Version 1)
Quarter: 2016Q1

REPORT INFORMATION
  Report Type: Spontaneous
  Country: FR (occurrence: FR)
  Receive Date: 20160122
  Receipt Date: 20160122
  Transmission Date: 20160526
  Serious: Yes (Hospitalization, Other)
  Sender: FDA-Public Use
  Company Number: FR-MEDTRONIC-1046795

PATIENT
  Age: 47 Year
  Sex: Female

DRUGS (2)
  1. VALIUM [Suspect]
     Active Substance: DIAZEPAM
     Route: 065
  2. BACLOFEN. [Suspect]
     Active Substance: BACLOFEN
     Route: 065
     Dates: start: 2014

REACTIONS (11)
  - Anterograde amnesia [Unknown]
  - Alcohol withdrawal syndrome [Unknown]
  - Cognitive disorder [None]
  - Hallucinations, mixed [Unknown]
  - Inflammation [Unknown]
  - Accidental overdose [Unknown]
  - Confusional state [Unknown]
  - Fall [Unknown]
  - Toxicologic test abnormal [Unknown]
  - Overdose [Unknown]
  - Blood potassium decreased [None]

NARRATIVE: CASE EVENT DATE: 201410
